FAERS Safety Report 9470519 (Version 1)
Quarter: 2013Q3

REPORT INFORMATION
  Report Type: Report from Study
  Country: CA (occurrence: CA)
  Receive Date: 20130822
  Receipt Date: 20130822
  Transmission Date: 20140515
  Serious: Yes (Other)
  Sender: FDA-Public Use
  Company Number: CA-JNJFOC-20130810625

PATIENT
  Sex: Female
  Weight: 57.2 kg

DRUGS (5)
  1. REMICADE [Suspect]
     Indication: CROHN^S DISEASE
     Route: 042
     Dates: start: 20130515
  2. PREDNISONE [Concomitant]
     Route: 065
  3. COVERSYL [Concomitant]
     Route: 065
  4. CARVEDILOL [Concomitant]
     Route: 065
  5. SPIRONOLACTONE [Concomitant]
     Route: 065

REACTIONS (1)
  - Pancreatic carcinoma metastatic [Unknown]
